FAERS Safety Report 5678286-5 (Version None)
Quarter: 2008Q1

REPORT INFORMATION
  Report Type: 
  Country: None (occurrence: None)
  Receive Date: 20080324
  Receipt Date: 20080324
  Transmission Date: 20080703
  Serious: No
  Sender: FDA-Public Use
  Company Number: None

PATIENT
  Age: 57 Year
  Sex: Female

DRUGS (2)
  1. AVELOX [Suspect]
     Indication: HYPOXIA
     Dosage: 400MG Q24H IV
     Route: 042
     Dates: start: 20080227, end: 20080227
  2. AVELOX [Suspect]
     Indication: RESPIRATORY FAILURE
     Dosage: 400MG Q24H IV
     Route: 042
     Dates: start: 20080227, end: 20080227

REACTIONS (4)
  - FEELING HOT [None]
  - HEADACHE [None]
  - INFUSION RELATED REACTION [None]
  - PRURITUS [None]
